FAERS Safety Report 6029526-4 (Version None)
Quarter: 2009Q1

REPORT INFORMATION
  Report Type: 
  Country: None (occurrence: None)
  Receive Date: 20090107
  Receipt Date: 20081003
  Transmission Date: 20090719
  Serious: No
  Sender: FDA-Public Use
  Company Number: US-BAYER-200835015NA

PATIENT
  Sex: Female

DRUGS (2)
  1. FLUDARA [Suspect]
     Indication: NON-HODGKIN'S LYMPHOMA
  2. CYTOXIN (CYCLOPHOSPHAMIDE) [Suspect]
     Indication: NON-HODGKIN'S LYMPHOMA

REACTIONS (1)
  - COUGH [None]
